FAERS Safety Report 4842362-7 (Version None)
Quarter: 2005Q4

REPORT INFORMATION
  Report Type: 
  Country: None (occurrence: None)
  Receive Date: 20051125
  Receipt Date: 20051115
  Transmission Date: 20060501
  Serious: Yes (Other)
  Sender: FDA-Public Use
  Company Number: 2005149241

PATIENT
  Age: 62 Year
  Sex: Male

DRUGS (2)
  1. LIPITOR [Suspect]
     Indication: BLOOD CHOLESTEROL INCREASED
     Dosage: 20 MG (1 IN 1 D), ORAL
     Route: 048
     Dates: start: 20050124, end: 20050317
  2. TOPROL (METOPROLOL) [Concomitant]

REACTIONS (7)
  - BLOOD DISORDER [None]
  - MOVEMENT DISORDER [None]
  - MUSCLE INJURY [None]
  - PARALYSIS [None]
  - PHYSICAL EXAMINATION ABNORMAL [None]
  - RENAL DISORDER [None]
  - SPINAL DISORDER [None]
